FAERS Safety Report 16384593 (Version 1)
Quarter: 2019Q2

REPORT INFORMATION
  Report Type: Spontaneous
  Country: US (occurrence: US)
  Receive Date: 20190603
  Receipt Date: 20190603
  Transmission Date: 20190711
  Serious: Yes (Other)
  Sender: FDA-Public Use
  Company Number: US-PINE PHARMACEUTICALS, LLC-2067718

PATIENT

DRUGS (1)
  1. BEVACIZUMAB. [Suspect]
     Active Substance: BEVACIZUMAB
     Route: 051
     Dates: start: 20190517, end: 20190517

REACTIONS (1)
  - Non-infectious endophthalmitis [Recovering/Resolving]
